FAERS Safety Report 13179688 (Version 1)
Quarter: 2017Q1

REPORT INFORMATION
  Report Type: Spontaneous
  Country: US (occurrence: US)
  Receive Date: 20170202
  Receipt Date: 20170202
  Transmission Date: 20170428
  Serious: Yes (Hospitalization, Other)
  Sender: FDA-Public Use
  Company Number: None

PATIENT
  Age: 55 Year
  Sex: Female
  Weight: 135 kg

DRUGS (12)
  1. POTASSIUM [Concomitant]
     Active Substance: POTASSIUM
  2. SIMVASTATIN. [Concomitant]
     Active Substance: SIMVASTATIN
  3. VANCOMYCIN [Suspect]
     Active Substance: VANCOMYCIN
     Indication: OSTEOMYELITIS
     Route: 042
  4. VITAMIN D [Concomitant]
     Active Substance: CHOLECALCIFEROL
  5. LASIX [Concomitant]
     Active Substance: FUROSEMIDE
  6. SOMA [Concomitant]
     Active Substance: CARISOPRODOL
  7. MAGNESIUM [Concomitant]
     Active Substance: MAGNESIUM
  8. GABAPENTIN. [Concomitant]
     Active Substance: GABAPENTIN
  9. LEVOTHROXINE [Concomitant]
     Active Substance: LEVOTHYROXINE
  10. MORPHINE XR [Concomitant]
  11. CLARITIN-D 12 HOUR [Concomitant]
     Active Substance: LORATADINE\PSEUDOEPHEDRINE SULFATE
  12. OXYCODONE [Concomitant]
     Active Substance: OXYCODONE

REACTIONS (2)
  - Renal failure [None]
  - Respiratory failure [None]

NARRATIVE: CASE EVENT DATE: 20160801
